FAERS Safety Report 14689672 (Version 4)
Quarter: 2019Q1

REPORT INFORMATION
  Report Type: Report from Study
  Country: GE (occurrence: GE)
  Receive Date: 20180328
  Receipt Date: 20190102
  Transmission Date: 20190417
  Serious: Yes (Life-Threatening)
  Sender: FDA-Public Use
  Company Number: GE-PFIZER INC-2018124360

PATIENT
  Age: 27 Year
  Sex: Male
  Weight: 71 kg

DRUGS (5)
  1. IRINOTECAN HCL [Suspect]
     Active Substance: IRINOTECAN HYDROCHLORIDE
     Dosage: 665 MG TOTAL DAILY DOSE, CYCLE ONE, CYCLIC
     Route: 041
  2. DINUTUXIMAB [Suspect]
     Active Substance: DINUTUXIMAB
     Indication: SMALL CELL LUNG CANCER
     Dosage: 30.4 MG TOTAL DAILY DOSE, CYCLIC (CYCLE 1)
     Route: 041
     Dates: start: 20180305
  3. IRINOTECAN HCL [Suspect]
     Active Substance: IRINOTECAN HYDROCHLORIDE
     Indication: SMALL CELL LUNG CANCER
     Dosage: 665 MG TOTAL DAILY DOSE, CYCLE ONE, CYCLIC
     Route: 041
     Dates: start: 20180305
  4. IRINOTECAN HCL [Suspect]
     Active Substance: IRINOTECAN HYDROCHLORIDE
     Dosage: 665 MG TOTAL DAILY DOSE, CYCLE ONE, CYCLIC
     Route: 041
  5. DINUTUXIMAB [Suspect]
     Active Substance: DINUTUXIMAB
     Dosage: 30.4 MG TOTAL DAILY DOSE, CYCLIC (CYCLE 1)
     Route: 041

REACTIONS (1)
  - Bronchospasm [Recovered/Resolved]

NARRATIVE: CASE EVENT DATE: 20180305
